FAERS Safety Report 25102255 (Version 2)
Quarter: 2025Q2

REPORT INFORMATION
  Report Type: Spontaneous
  Country: JP (occurrence: JP)
  Receive Date: 20250320
  Receipt Date: 20250424
  Transmission Date: 20250716
  Serious: Yes (Death, Other)
  Sender: MALLINCKRODT
  Company Number: JP-MALLINCKRODT-MNK202501566

PATIENT
  Sex: Male

DRUGS (1)
  1. NITRIC OXIDE [Suspect]
     Active Substance: NITRIC OXIDE
     Indication: Pulmonary hypertension
     Route: 055

REACTIONS (4)
  - Septic shock [Fatal]
  - Renal impairment [Unknown]
  - Pulmonary alveolar haemorrhage [Unknown]
  - Pulmonary hypertension [Unknown]
